FAERS Safety Report 23275811 (Version 1)
Quarter: 2023Q4

REPORT INFORMATION
  Report Type: Spontaneous
  Country: US (occurrence: None)
  Receive Date: 20231207
  Receipt Date: 20231207
  Transmission Date: 20240109
  Serious: Yes (Hospitalization)
  Sender: FDA-Public Use
  Company Number: None

PATIENT
  Age: 58 Year
  Sex: Female

DRUGS (3)
  1. AMBRISENTAN [Suspect]
     Active Substance: AMBRISENTAN
     Indication: Pulmonary arterial hypertension
     Dosage: FREQUENCY : DAILY;?
     Route: 048
     Dates: start: 20130103
  2. ORENIATRAM [Concomitant]
  3. SILDENAFIL [Concomitant]
     Active Substance: SILDENAFIL

REACTIONS (7)
  - Acute respiratory failure [None]
  - Pneumothorax [None]
  - Atrial fibrillation [None]
  - Post procedural complication [None]
  - Pleural effusion [None]
  - Dehiscence [None]
  - Aneurysm [None]

NARRATIVE: CASE EVENT DATE: 20231110
